FAERS Safety Report 10211305 (Version 1)
Quarter: 2014Q2

REPORT INFORMATION
  Report Type: Report from Study
  Country: PR (occurrence: PR)
  Receive Date: 20140602
  Receipt Date: 20140602
  Transmission Date: 20141212
  Serious: Yes (Hospitalization)
  Sender: FDA-Public Use
  Company Number: PR-ABBVIE-14P-131-1240977-00

PATIENT
  Sex: Male

DRUGS (2)
  1. HUMIRA [Suspect]
     Indication: PSORIASIS
     Route: 058
     Dates: end: 20140413
  2. UNKNOWN MEDICATION [Concomitant]
     Indication: SKIN DISORDER

REACTIONS (4)
  - Urethral perforation [Unknown]
  - Immunodeficiency [Unknown]
  - Haemoglobin decreased [Unknown]
  - Bacterial infection [Unknown]
